FAERS Safety Report 24235557 (Version 1)
Quarter: 2024Q3

REPORT INFORMATION
  Report Type: Spontaneous
  Country: JP (occurrence: None)
  Receive Date: 20240822
  Receipt Date: 20240822
  Transmission Date: 20241017
  Serious: Yes (Other)
  Sender: ADAMAS PHARMA
  Company Number: JP-ADAMAS Pharma-ADM202408-002987

PATIENT
  Sex: Male

DRUGS (15)
  1. AMANTADINE HYDROCHLORIDE [Suspect]
     Active Substance: AMANTADINE HYDROCHLORIDE
     Indication: Parkinson^s disease
  2. ISTRADEFYLLINE [Concomitant]
     Active Substance: ISTRADEFYLLINE
  3. RASAGILINE [Concomitant]
     Active Substance: RASAGILINE\RASAGILINE MESYLATE
  4. RISPERIDONE [Concomitant]
     Active Substance: RISPERIDONE
  5. FENOFIBRATE [Concomitant]
     Active Substance: FENOFIBRATE
  6. AMLODIPINE [Concomitant]
     Active Substance: AMLODIPINE BESYLATE
  7. LUBIPROSTONE [Concomitant]
     Active Substance: LUBIPROSTONE
  8. MAGNESIUM OXIDE [Concomitant]
     Active Substance: MAGNESIUM OXIDE
  9. MOSAPRIDE [Concomitant]
     Active Substance: MOSAPRIDE
  10. ELOBIXIBAT [Concomitant]
     Active Substance: ELOBIXIBAT
  11. SENNOSIDES [Concomitant]
     Active Substance: SENNOSIDES
  12. VONOPRAZAN [Concomitant]
     Active Substance: VONOPRAZAN
  13. STALEVO [Concomitant]
     Active Substance: CARBIDOPA\ENTACAPONE\LEVODOPA
     Dosage: EACH DF CONTAINS LEVODOPA 600 MG/DAY, ENTACAPONE 600 MG/DAY
  14. STALEVO [Concomitant]
     Active Substance: CARBIDOPA\ENTACAPONE\LEVODOPA
     Dosage: EACH DF CONTAINS LEVODOPA 1000 MG/DAY, ENTACAPONE 1000 MG/DAY
  15. DROXIDOPA [Interacting]
     Active Substance: DROXIDOPA
     Indication: Orthostatic hypertension

REACTIONS (4)
  - Drug interaction [Unknown]
  - Toxicity to various agents [Unknown]
  - Epilepsy [Recovered/Resolved]
  - Delirium [Recovered/Resolved]
